FAERS Safety Report 10366411 (Version 1)
Quarter: 2014Q3

REPORT INFORMATION
  Report Type: Spontaneous
  Country: FR (occurrence: None)
  Receive Date: 20140804
  Receipt Date: 20140804
  Transmission Date: 20150326
  Serious: Yes (Hospitalization)
  Sender: FDA-Public Use
  Company Number: SYM-2014-23750

PATIENT
  Age: 82 Year
  Sex: Female

DRUGS (2)
  1. XENAZINE [Suspect]
     Active Substance: TETRABENAZINE
     Indication: TARDIVE DYSKINESIA
     Route: 048
     Dates: start: 200809, end: 20090615
  2. STABLON (TIANEPTINE SODIUM) (TIANEPTINE SODIUM) [Concomitant]

REACTIONS (4)
  - Hypertonia [None]
  - Parkinsonism [None]
  - Malaise [None]
  - Loss of consciousness [None]

NARRATIVE: CASE EVENT DATE: 20090612
